FAERS Safety Report 4447102-1 (Version None)
Quarter: 2004Q3

REPORT INFORMATION
  Report Type: 
  Country: None (occurrence: None)
  Receive Date: 20040813
  Receipt Date: 20040520
  Transmission Date: 20050211
  Serious: No
  Sender: FDA-Public Use
  Company Number: S04-USA-03592-01

PATIENT
  Age: 46 Year
  Sex: Male

DRUGS (5)
  1. NAMENDA [Suspect]
     Indication: DEMENTIA ALZHEIMER'S TYPE
     Dosage: 5 MG QD PO
     Route: 048
     Dates: start: 20040429, end: 20040508
  2. ARICEPT [Concomitant]
  3. THYROID MEDICATION (NOS) [Concomitant]
  4. ALLOPURINOL [Concomitant]
  5. VIOXX [Concomitant]

REACTIONS (2)
  - AGGRESSION [None]
  - MENTAL IMPAIRMENT [None]
